FAERS Safety Report 10547790 (Version 1)
Quarter: 2014Q4

REPORT INFORMATION
  Report Type: Spontaneous
  Country: ES (occurrence: None)
  Receive Date: 20141024
  Receipt Date: 20141024
  Transmission Date: 20150529
  Serious: Yes (Other)
  Sender: FDA-Public Use
  Company Number: 20142146

PATIENT
  Age: 60 Year
  Sex: Female

DRUGS (6)
  1. PARIET/RABEPRAZOL [Concomitant]
  2. NAPROXEN/NAPROXEN [Concomitant]
  3. ACFOL/FOLIC ACID [Concomitant]
  4. ENBREL [Suspect]
     Active Substance: ETANERCEPT
     Indication: RHEUMATOID ARTHRITIS
     Dosage: //SUBCUTANEOUS?1 X 50 MILLIGRAM IN 1 WEEK//
     Route: 058
     Dates: start: 20100128, end: 20140129
  5. METOJECT (METHOTREXATE) [Suspect]
     Active Substance: METHOTREXATE SODIUM
     Indication: RHEUMATOID ARTHRITIS
     Dosage: SOLUTION FOR INJECTION IN PRE-FILLED SYRINGE //SUBCUTANEOUS ?2010/ //?X20 MILLIGRAM IN 1 WEEK //
     Route: 058
     Dates: start: 2010
  6. DACORTIN/PREDNISONE [Concomitant]

REACTIONS (1)
  - Chronic lymphocytic leukaemia [None]

NARRATIVE: CASE EVENT DATE: 20130530
